FAERS Safety Report 21161805 (Version 3)
Quarter: 2023Q2

REPORT INFORMATION
  Report Type: Other
  Country: GB (occurrence: GB)
  Receive Date: 20220802
  Receipt Date: 20230516
  Transmission Date: 20230722
  Serious: Yes (Other)
  Sender: FDA-Public Use
  Company Number: GB-MACLEODS PHARMACEUTICALS US LTD-MAC2019023744

PATIENT

DRUGS (9)
  1. ARIPIPRAZOLE [Interacting]
     Active Substance: ARIPIPRAZOLE
     Indication: Bipolar disorder
     Dosage: UNK, DURING 1 TRIMESTER TABLET (UNCOATED, ORAL)
     Route: 048
  2. LAMICTAL [Interacting]
     Active Substance: LAMOTRIGINE
     Indication: Bipolar disorder
     Dosage: 150 MILLIGRAM, QD, (50 MG, TID)
     Route: 048
  3. LAMICTAL [Interacting]
     Active Substance: LAMOTRIGINE
     Dosage: 50 MILLIGRAM, QD
     Route: 048
  4. LAMICTAL [Interacting]
     Active Substance: LAMOTRIGINE
     Dosage: 50 MILLIGRAM, QID
     Route: 048
  5. CETIRIZINE [Interacting]
     Active Substance: CETIRIZINE HYDROCHLORIDE
     Indication: Seasonal allergy
     Dosage: 1 DOSAGE FORM, QD (OCCASIONAL CETIRIZINE)
     Route: 048
  6. CETIRIZINE [Interacting]
     Active Substance: CETIRIZINE HYDROCHLORIDE
     Dosage: 1 MILLIGRAM, QID (TABLET)
     Route: 048
  7. NEXPLANON [Interacting]
     Active Substance: ETONOGESTREL
     Indication: Contraception
     Dosage: 68 MILLIGRAM, DURING 1 TRIMESTER, (PL 00065/0161), IMPLANT FOR SUBDERMAL USE, SUBCUTANEOUS
     Route: 058
  8. NEXPLANON [Interacting]
     Active Substance: ETONOGESTREL
     Dosage: UNK ( PL 00065/0161)
     Route: 065
  9. ABILIFY [Interacting]
     Active Substance: ARIPIPRAZOLE
     Indication: Bipolar disorder
     Dosage: UNK, DURING 1 TRIMESTER TABLET (UNCOATED, ORAL)
     Route: 048

REACTIONS (12)
  - Pregnancy with contraceptive device [Unknown]
  - Abortion spontaneous [Unknown]
  - Intermenstrual bleeding [Unknown]
  - Intermenstrual bleeding [Unknown]
  - Intermenstrual bleeding [Unknown]
  - Pregnancy with implant contraceptive [Unknown]
  - Pregnancy on contraceptive [Unknown]
  - Unintended pregnancy [Unknown]
  - Pregnancy [Unknown]
  - Maternal exposure during pregnancy [Unknown]
  - Exposure during pregnancy [Unknown]
  - Drug interaction [Unknown]
